FAERS Safety Report 7678184-1 (Version None)
Quarter: 2011Q3

REPORT INFORMATION
  Report Type: 
  Country: None (occurrence: None)
  Receive Date: 20110811
  Receipt Date: 20090331
  Transmission Date: 20111222
  Serious: Yes (Death, Disabling, Other)
  Sender: FDA-Public Use
  Company Number: US-BAYER-200912429NA

PATIENT
  Sex: Female

DRUGS (41)
  1. NOVOLIN R [Concomitant]
  2. CLONAZINE [Concomitant]
  3. LOPRESSOR [Concomitant]
  4. LANTUS [Concomitant]
  5. INSULIN HUMULIN [Concomitant]
  6. HYDROMORPHONE HCL [Concomitant]
  7. ALBUMIN (HUMAN) [Concomitant]
  8. DEXTROSE [Concomitant]
  9. SIMVASTATIN [Concomitant]
  10. PRINIVIL [Concomitant]
  11. DARVOCET [Concomitant]
  12. PAPAIN W/UREA [Concomitant]
  13. ZOLPIDEM TARTRATE [Concomitant]
  14. MAGNEVIST [Suspect]
     Indication: NUCLEAR MAGNETIC RESONANCE IMAGING
     Dosage: 15 ML, ONCE
     Dates: start: 20051220, end: 20051220
  15. NORVASC [Concomitant]
  16. ROCALTROL [Concomitant]
  17. LASIX [Concomitant]
  18. PREVACID [Concomitant]
  19. INSULIN GLARGINE [Concomitant]
  20. LEVOTHYROXINE SODIUM [Concomitant]
  21. DURAGESIC-100 [Concomitant]
  22. NEPRO [Concomitant]
  23. ZINC SULFATE [Concomitant]
  24. MANNITOL [Concomitant]
  25. CALCITRIOL SALMON PHARMA [Concomitant]
  26. MAGNEVIST [Suspect]
     Dosage: 15 ML, ONCE
     Dates: start: 20060619, end: 20060619
  27. OPTIMARK [Suspect]
     Indication: NUCLEAR MAGNETIC RESONANCE IMAGING
     Dosage: 10 ML, ONCE
     Dates: start: 20060627, end: 20060627
  28. EPOGEN [Concomitant]
  29. PLAVIX [Concomitant]
  30. RENAGEL [Concomitant]
  31. FENTANYL [Concomitant]
  32. VENOFER [Concomitant]
  33. FOLIC ACID [Concomitant]
  34. MAGNEVIST [Suspect]
     Dosage: 40 ML, ONCE
     Dates: start: 20061201, end: 20061201
  35. ZEMPLAR [Concomitant]
  36. OXYCODONE HCL [Concomitant]
  37. ZOCOR [Concomitant]
  38. DARBEPOETIN ALFA [Concomitant]
  39. DOPAMINE HCL [Concomitant]
  40. DIPHENHYDRAMINE HCL [Concomitant]
  41. SEVELAMER [Concomitant]

REACTIONS (20)
  - FIBROSIS [None]
  - EXTREMITY CONTRACTURE [None]
  - PARAESTHESIA [None]
  - JOINT RANGE OF MOTION DECREASED [None]
  - GENERAL PHYSICAL HEALTH DETERIORATION [None]
  - SKIN INDURATION [None]
  - EMOTIONAL DISTRESS [None]
  - SKIN EXFOLIATION [None]
  - HYPOAESTHESIA [None]
  - HYPERAESTHESIA [None]
  - NEPHROGENIC SYSTEMIC FIBROSIS [None]
  - DEFORMITY [None]
  - SKIN FIBROSIS [None]
  - SKIN HYPERTROPHY [None]
  - MUSCLE CONTRACTURE [None]
  - ANXIETY [None]
  - PAIN [None]
  - OEDEMA PERIPHERAL [None]
  - ASTHENIA [None]
  - HYPERKERATOSIS [None]
